FAERS Safety Report 8698202 (Version 2)
Quarter: 2013Q4

REPORT INFORMATION
  Report Type: Spontaneous
  Country: US (occurrence: US)
  Receive Date: 20120802
  Receipt Date: 20131101
  Transmission Date: 20140711
  Serious: No
  Sender: FDA-Public Use
  Company Number: US-009507513-1207USA009765

PATIENT
  Age: 81 Year
  Sex: Male

DRUGS (8)
  1. ZOCOR [Suspect]
     Dosage: UNK
     Route: 048
  2. NEXIUM [Suspect]
     Route: 048
  3. METOPROLOL SUCCINATE [Suspect]
     Route: 048
  4. CRESTOR [Suspect]
     Route: 048
  5. ZETIA [Suspect]
     Route: 048
  6. LIPITOR [Suspect]
  7. ASPIRIN [Concomitant]
  8. VITAMINS (UNSPECIFIED) [Concomitant]

REACTIONS (6)
  - Hernia [Unknown]
  - Drug ineffective [Unknown]
  - Blood pressure increased [Unknown]
  - Pain in extremity [Unknown]
  - Muscular weakness [Unknown]
  - Heart rate increased [Unknown]
